FAERS Safety Report 10850389 (Version 1)
Quarter: 2015Q1

REPORT INFORMATION
  Report Type: Spontaneous
  Country: GB (occurrence: GB)
  Receive Date: 20150222
  Receipt Date: 20150222
  Transmission Date: 20150721
  Serious: Yes (Other)
  Sender: FDA-Public Use
  Company Number: GB-TEVA-541027ACC

PATIENT
  Age: 5 Year
  Sex: Female
  Weight: 24.03 kg

DRUGS (3)
  1. PREDNISOLONE. [Suspect]
     Active Substance: PREDNISOLONE
     Indication: COUGH
  2. PREDNISOLONE. [Suspect]
     Active Substance: PREDNISOLONE
     Indication: WHEEZING
     Dosage: 20 MILLIGRAM DAILY; SOLUBLE TABLET, DAILY DOSE 20 MILLIGRAM
     Route: 048
     Dates: start: 20140227, end: 20140227
  3. AMOXICILLIN. [Concomitant]
     Active Substance: AMOXICILLIN

REACTIONS (3)
  - Pallor [Recovered/Resolved]
  - Faeces discoloured [Recovered/Resolved]
  - Dark circles under eyes [Recovered/Resolved]

NARRATIVE: CASE EVENT DATE: 20140227
